FAERS Safety Report 4541198-4 (Version None)
Quarter: 2004Q4

REPORT INFORMATION
  Report Type: 
  Country: None (occurrence: None)
  Receive Date: 20041229
  Receipt Date: 20041221
  Transmission Date: 20050328
  Serious: Yes (Hospitalization)
  Sender: FDA-Public Use
  Company Number: FR-ABBOTT-04P-056-0284333-00

PATIENT
  Age: 42 Year
  Sex: Male

DRUGS (4)
  1. DEPAKENE [Suspect]
     Indication: EPILEPSY
     Route: 048
  2. TOPIRAMATE [Concomitant]
     Indication: EPILEPSY
     Route: 048
  3. LEVETIRACETAM [Concomitant]
     Indication: EPILEPSY
     Route: 048
  4. OXCARBAZEPINE [Concomitant]
     Indication: EPILEPSY
     Route: 048

REACTIONS (7)
  - BRAIN OEDEMA [None]
  - COMA [None]
  - DRUG LEVEL INCREASED [None]
  - FALL [None]
  - HEAD INJURY [None]
  - LOSS OF CONSCIOUSNESS [None]
  - RESPIRATORY DEPRESSION [None]
